FAERS Safety Report 5258546-2 (Version None)
Quarter: 2007Q1

REPORT INFORMATION
  Report Type: 
  Country: None (occurrence: None)
  Receive Date: 20070308
  Receipt Date: 20070306
  Transmission Date: 20070707
  Serious: Yes (Hospitalization)
  Sender: FDA-Public Use
  Company Number: US-BRISTOL-MYERS SQUIBB COMPANY-13702139

PATIENT
  Age: 53 Year
  Sex: Female
  Weight: 68 kg

DRUGS (3)
  1. PRAVACHOL [Suspect]
     Dosage: INCREASED TO 40 MG THEN D/C
     Route: 048
     Dates: end: 20070101
  2. COUMADIN [Concomitant]
     Dosage: 8MG TO 10 MG DAILY
  3. TOPROL-XL [Concomitant]

REACTIONS (4)
  - ASTHENIA [None]
  - DYSARTHRIA [None]
  - HYPOAESTHESIA [None]
  - PARAESTHESIA [None]
